FAERS Safety Report 7540185-1 (Version None)
Quarter: 2011Q2

REPORT INFORMATION
  Report Type: 
  Country: None (occurrence: None)
  Receive Date: 20110610
  Receipt Date: 20110603
  Transmission Date: 20111010
  Serious: Yes (Other)
  Sender: FDA-Public Use
  Company Number: US-JNJFOC-20110602888

PATIENT
  Sex: Female
  Weight: 109.77 kg

DRUGS (11)
  1. OXYCODONE HCL [Concomitant]
     Indication: SPINAL COLUMN STENOSIS
     Route: 048
     Dates: start: 20100601
  2. VALIUM [Concomitant]
     Indication: PANIC ATTACK
     Route: 065
     Dates: start: 20080101
  3. OXYCODONE HCL [Concomitant]
     Indication: ARTHRITIS
     Route: 048
     Dates: start: 20100601
  4. DURAGESIC-100 [Suspect]
     Route: 062
     Dates: start: 20110301
  5. DURAGESIC-100 [Suspect]
     Indication: ARTHRITIS
     Route: 062
     Dates: start: 20110601
  6. DURAGESIC-100 [Suspect]
     Route: 062
     Dates: start: 20110301
  7. VALIUM [Concomitant]
     Indication: ANXIETY
     Route: 065
     Dates: start: 20080101
  8. FENTANYL-100 [Suspect]
     Indication: PRODUCT USED FOR UNKNOWN INDICATION
     Route: 062
     Dates: start: 20110101
  9. DURAGESIC-100 [Suspect]
     Route: 062
     Dates: start: 20110601
  10. DURAGESIC-100 [Suspect]
     Route: 062
     Dates: start: 20101101, end: 20110301
  11. DURAGESIC-100 [Suspect]
     Indication: SPINAL COLUMN STENOSIS
     Route: 062
     Dates: start: 20101101, end: 20110301

REACTIONS (9)
  - VISION BLURRED [None]
  - PAIN IN EXTREMITY [None]
  - DYSPNOEA [None]
  - GAIT DISTURBANCE [None]
  - PANIC ATTACK [None]
  - HEADACHE [None]
  - INADEQUATE ANALGESIA [None]
  - FEELING ABNORMAL [None]
  - MALAISE [None]
